FAERS Safety Report 5860469-2 (Version None)
Quarter: 2008Q3

REPORT INFORMATION
  Report Type: 
  Country: None (occurrence: None)
  Receive Date: 20080827
  Receipt Date: 20080122
  Transmission Date: 20090109
  Serious: No
  Sender: FDA-Public Use
  Company Number: US-ABBOTT-07P-163-0377378-00

PATIENT
  Sex: Female
  Weight: 81.72 kg

DRUGS (6)
  1. COATED PDS [Suspect]
     Indication: BLOOD CHOLESTEROL
     Route: 048
     Dates: start: 20070802, end: 20070807
  2. COATED PDS [Suspect]
     Route: 048
     Dates: start: 20040101, end: 20070801
  3. VALSARTAN [Concomitant]
     Indication: BLOOD PRESSURE
  4. PIOGLITAZONE [Concomitant]
     Indication: DIABETES MELLITUS
  5. PRAVACOL/STATIN [Concomitant]
     Indication: BLOOD CHOLESTEROL
  6. OMEPRAZOLE [Concomitant]
     Indication: GASTROOESOPHAGEAL REFLUX DISEASE

REACTIONS (4)
  - CHEST PAIN [None]
  - GASTROOESOPHAGEAL REFLUX DISEASE [None]
  - NAUSEA [None]
  - VOMITING [None]
